FAERS Safety Report 6263304-6 (Version None)
Quarter: 2009Q3

REPORT INFORMATION
  Report Type: 
  Country: None (occurrence: None)
  Receive Date: 20090710
  Receipt Date: 20090331
  Transmission Date: 20100115
  Serious: No
  Sender: FDA-Public Use
  Company Number: A0776630A

PATIENT

DRUGS (2)
  1. REQUIP XL [Suspect]
     Indication: PARKINSON'S DISEASE
     Route: 048
  2. UNKNOWN [Concomitant]

REACTIONS (2)
  - FEELING JITTERY [None]
  - NERVOUSNESS [None]
